FAERS Safety Report 16890861 (Version 3)
Quarter: 2019Q4

REPORT INFORMATION
  Report Type: Spontaneous
  Country: US (occurrence: US)
  Receive Date: 20191007
  Receipt Date: 20191211
  Transmission Date: 20200122
  Serious: No
  Sender: FDA-Public Use
  Company Number: US-PFIZER INC-2019428670

PATIENT
  Age: 52 Year
  Sex: Female

DRUGS (1)
  1. XELJANZ XR [Suspect]
     Active Substance: TOFACITINIB CITRATE
     Indication: RHEUMATOID ARTHRITIS
     Dosage: 11 MG, DAILY
     Route: 048
     Dates: start: 20190905

REACTIONS (10)
  - Cough [Unknown]
  - Disease recurrence [Not Recovered/Not Resolved]
  - Palpitations [Unknown]
  - Seasonal allergy [Not Recovered/Not Resolved]
  - Sinus congestion [Unknown]
  - Ear congestion [Unknown]
  - Bronchitis [Unknown]
  - Rhinorrhoea [Unknown]
  - Ear infection [Not Recovered/Not Resolved]
  - Capillary fragility [Unknown]
